FAERS Safety Report 4354762-2 (Version None)
Quarter: 2004Q2

REPORT INFORMATION
  Report Type: 
  Country: None (occurrence: None)
  Receive Date: 20040507
  Receipt Date: 20040326
  Transmission Date: 20050107
  Serious: Yes (Other)
  Sender: FDA-Public Use
  Company Number: 200413493GDDC

PATIENT
  Age: 69 Year
  Sex: Female

DRUGS (1)
  1. INSULIN GLARGINE [Suspect]
     Indication: DIABETES MELLITUS
     Dosage: DOSE UNIT: UNITS
     Route: 058
     Dates: start: 20031003, end: 20040317

REACTIONS (1)
  - POSTMENOPAUSAL HAEMORRHAGE [None]
